FAERS Safety Report 11490674 (Version 1)
Quarter: 2015Q3

REPORT INFORMATION
  Report Type: Spontaneous
  Country: US (occurrence: US)
  Receive Date: 20150910
  Receipt Date: 20150910
  Transmission Date: 20151125
  Serious: No
  Sender: FDA-Public Use
  Company Number: US-BAYER-2015-411964

PATIENT
  Age: 28 Year
  Sex: Female

DRUGS (1)
  1. MIRENA [Suspect]
     Active Substance: LEVONORGESTREL
     Indication: CONTRACEPTION
     Dosage: 20 MCG/24HR, CONT
     Route: 015
     Dates: start: 20150825

REACTIONS (10)
  - Procedural nausea [None]
  - Abdominal pain lower [None]
  - Feeling hot [None]
  - Procedural pain [None]
  - Dysstasia [Recovered/Resolved]
  - Complication of device insertion [None]
  - Paraesthesia [None]
  - Dyspnoea [None]
  - Device use error [None]
  - Procedural dizziness [None]

NARRATIVE: CASE EVENT DATE: 20150825
